FAERS Safety Report 5981402-9 (Version None)
Quarter: 2008Q4

REPORT INFORMATION
  Report Type: 
  Country: None (occurrence: None)
  Receive Date: 20081205
  Receipt Date: 20080222
  Transmission Date: 20090506
  Serious: No
  Sender: FDA-Public Use
  Company Number: US-AMGEN-KDL262300

PATIENT
  Sex: Female

DRUGS (2)
  1. ENBREL [Suspect]
     Indication: ARTHRITIS
     Route: 058
     Dates: start: 20070417
  2. SULFASALAZINE [Concomitant]
     Dates: start: 20060101

REACTIONS (8)
  - CHEST PAIN [None]
  - COUGH [None]
  - INJECTION SITE HAEMATOMA [None]
  - INJECTION SITE PAIN [None]
  - OROPHARYNGEAL PAIN [None]
  - OTITIS MEDIA [None]
  - SCIATICA [None]
  - TYMPANIC MEMBRANE PERFORATION [None]
